FAERS Safety Report 9516812 (Version 1)
Quarter: 2013Q3

REPORT INFORMATION
  Report Type: Spontaneous
  Country: FR (occurrence: None)
  Receive Date: 20130703
  Receipt Date: 20130703
  Transmission Date: 20140515
  Serious: Yes (Hospitalization)
  Sender: FDA-Public Use
  Company Number: 221970

PATIENT
  Age: 41 Year
  Sex: Male
  Weight: 106 kg

DRUGS (1)
  1. INNOHEP (TINZAPARIN SODIUM) [Suspect]
     Indication: OSTEOSYNTHESIS
     Route: 058
     Dates: start: 20121129, end: 20130115

REACTIONS (7)
  - Dyspnoea [None]
  - Chest pain [None]
  - Tachycardia [None]
  - Hypoxia [None]
  - Hypocapnia [None]
  - Pulmonary embolism [None]
  - Deep vein thrombosis [None]
